FAERS Safety Report 9889667 (Version 2)
Quarter: 2014Q1

REPORT INFORMATION
  Report Type: Spontaneous
  Country: IN (occurrence: IN)
  Receive Date: 20140211
  Receipt Date: 20140211
  Transmission Date: 20141002
  Serious: Yes (Hospitalization, Other)
  Sender: FDA-Public Use
  Company Number: IN-PFIZER INC-2014037065

PATIENT
  Age: 27 Year
  Sex: Female

DRUGS (4)
  1. PHENYTOIN [Suspect]
     Indication: CONVULSION
     Dosage: 100 MG, UNK
     Route: 042
  2. CEFTRIAXONE [Interacting]
     Dosage: UNK
  3. DICLOFENAC [Interacting]
     Dosage: UNK
  4. ALPRAZOLAM [Concomitant]
     Dosage: 0.5 MG, UNK
     Route: 048

REACTIONS (4)
  - Drug interaction [Unknown]
  - Drug administration error [Unknown]
  - Toxicity to various agents [Unknown]
  - Sinoatrial block [Recovered/Resolved]
